FAERS Safety Report 9728535 (Version 1)
Quarter: 2013Q4

REPORT INFORMATION
  Report Type: Spontaneous
  Country: IT (occurrence: None)
  Receive Date: 20131202
  Receipt Date: 20131202
  Transmission Date: 20140711
  Serious: Yes (Other)
  Sender: FDA-Public Use
  Company Number: 2032916

PATIENT
  Age: 68 Year
  Sex: Male
  Weight: 90 kg

DRUGS (4)
  1. PENTOSTATIN [Suspect]
     Indication: CHRONIC LYMPHOCYTIC LEUKAEMIA
     Dosage: 4 MG/M2 MILLIGRAM(S) /SQ. METER, (UNKNOWN)
     Dates: start: 20111125, end: 20120309
  2. CYCLOPHOSPHAMIDE [Suspect]
     Indication: CHRONIC LYMPHOCYTIC LEUKAEMIA
     Dosage: 600 MG//M2 /SQ. METER (UNKNOWN) (UNKNOWN)
     Dates: start: 20111125, end: 20120309
  3. OFATUMUMAB [Suspect]
     Indication: CHRONIC LYMPHOCYTIC LEUKAEMIA
     Dosage: 1000 MG MILLIGRAM(S) UNKNOWN) UNKNOWN
     Dates: start: 20111125, end: 20120309
  4. (DUTASTER8DE) [Concomitant]

REACTIONS (2)
  - Myelodysplastic syndrome [None]
  - Anaemia [None]
